FAERS Safety Report 19097713 (Version 2)
Quarter: 2021Q2

REPORT INFORMATION
  Report Type: Spontaneous
  Country: BR (occurrence: BR)
  Receive Date: 20210406
  Receipt Date: 20210611
  Transmission Date: 20210717
  Serious: No
  Sender: FDA-Public Use
  Company Number: BR-TOLMAR, INC.-21BR026186

PATIENT
  Age: 56 Year
  Sex: Female

DRUGS (3)
  1. ELIGARD [Suspect]
     Active Substance: LEUPROLIDE ACETATE
     Indication: OVARIAN CANCER
     Dosage: 7.5 MG, Q 3 MONTH
     Route: 065
     Dates: start: 20190103
  2. ELIGARD [Suspect]
     Active Substance: LEUPROLIDE ACETATE
     Dosage: 7.5 MG, Q 1 MONTH
     Route: 065
     Dates: start: 20210318
  3. ELIGARD [Suspect]
     Active Substance: LEUPROLIDE ACETATE
     Dosage: 7.5 MG, Q 1 MONTH
     Route: 065
     Dates: start: 20210218

REACTIONS (4)
  - Product physical consistency issue [Unknown]
  - Intercepted product preparation error [Unknown]
  - Off label use [Not Recovered/Not Resolved]
  - Product reconstitution quality issue [Unknown]

NARRATIVE: CASE EVENT DATE: 20190103
